FAERS Safety Report 9901786 (Version 2)
Quarter: 2014Q1

REPORT INFORMATION
  Report Type: Spontaneous
  Country: US (occurrence: US)
  Receive Date: 20140217
  Receipt Date: 20140217
  Transmission Date: 20141002
  Serious: Yes (Hospitalization)
  Sender: FDA-Public Use
  Company Number: US-GLAXOSMITHKLINE-A0833401A

PATIENT
  Sex: Male
  Weight: 98.2 kg

DRUGS (8)
  1. AVANDIA [Suspect]
     Indication: DIABETES MELLITUS
     Dosage: 4MG PER DAY
     Route: 048
     Dates: start: 20040410, end: 20070606
  2. METFORMIN [Concomitant]
     Dates: end: 200706
  3. PROTONIX [Concomitant]
  4. VYTORIN [Concomitant]
  5. MICRONASE [Concomitant]
  6. AMIODARONE [Concomitant]
  7. ALLOPURINOL [Concomitant]
  8. TOPROL XL [Concomitant]

REACTIONS (8)
  - Myocardial infarction [Unknown]
  - Cardiovascular disorder [Unknown]
  - Cardiac disorder [Unknown]
  - Thrombosis [Unknown]
  - Ventricular tachycardia [Unknown]
  - Atrial flutter [Unknown]
  - Cardiomyopathy [Unknown]
  - Cardiac failure congestive [Unknown]
